FAERS Safety Report 23910700 (Version 2)
Quarter: 2024Q2

REPORT INFORMATION
  Report Type: Report from Study
  Country: US (occurrence: US)
  Receive Date: 20240528
  Receipt Date: 20240604
  Transmission Date: 20240716
  Serious: Yes (Hospitalization, Other)
  Sender: FDA-Public Use
  Company Number: US-MYLANLABS-2024M1046975

PATIENT
  Sex: Female

DRUGS (4)
  1. ZOLOFT [Suspect]
     Active Substance: SERTRALINE HYDROCHLORIDE
     Indication: Depression
     Dosage: UNK
     Route: 064
     Dates: start: 20210927
  2. METFORMIN [Suspect]
     Active Substance: METFORMIN HYDROCHLORIDE
     Indication: Reproductive system disorder prophylaxis
     Dosage: UNK
     Route: 064
     Dates: start: 20210927
  3. ARIPIPRAZOLE [Suspect]
     Active Substance: ARIPIPRAZOLE
     Indication: Depression
     Dosage: 7.5 MILLIGRAM
     Route: 064
     Dates: start: 20210927
  4. ARIPIPRAZOLE [Suspect]
     Active Substance: ARIPIPRAZOLE
     Indication: Anxiety

REACTIONS (5)
  - Premature baby [Unknown]
  - Neonatal respiratory distress [Unknown]
  - Bradycardia neonatal [Recovered/Resolved]
  - Jaundice neonatal [Unknown]
  - Foetal exposure during pregnancy [Unknown]
